FAERS Safety Report 5462955-6 (Version None)
Quarter: 2007Q3

REPORT INFORMATION
  Report Type: 
  Country: None (occurrence: None)
  Receive Date: 20070920
  Receipt Date: 20070911
  Transmission Date: 20080115
  Serious: Yes (Other)
  Sender: FDA-Public Use
  Company Number: DE-BAYER-200711015BVD

PATIENT

DRUGS (1)
  1. AVELOX [Suspect]
     Indication: PNEUMONIA

REACTIONS (5)
  - ANURIA [None]
  - BLOOD CREATININE INCREASED [None]
  - DIALYSIS [None]
  - OLIGURIA [None]
  - RENAL FAILURE [None]
